FAERS Safety Report 9432734 (Version 1)
Quarter: 2013Q3

REPORT INFORMATION
  Report Type: Spontaneous
  Country: US (occurrence: US)
  Receive Date: 20130731
  Receipt Date: 20130731
  Transmission Date: 20140515
  Serious: Yes (Hospitalization)
  Sender: FDA-Public Use
  Company Number: US-B.I. PHARMACEUTICALS,INC./RIDGEFIELD-2013-BI-21848BP

PATIENT
  Age: 80 Year
  Sex: Male

DRUGS (9)
  1. AGGRENOX [Suspect]
     Indication: PRODUCT USED FOR UNKNOWN INDICATION
     Route: 065
  2. LOVENOX (ENOXAPARINE SODIUM) [Suspect]
     Indication: PULMONARY EMBOLISM
     Dates: start: 201306
  3. LOVENOX (ENOXAPARINE SODIUM) [Suspect]
     Indication: DEEP VEIN THROMBOSIS
  4. PLAVIX (CLOPIDOGREL) [Suspect]
     Indication: PRODUCT USED FOR UNKNOWN INDICATION
     Route: 065
  5. XARELTO (RIVAROXABAN) TABLET [Suspect]
     Indication: PULMONARY EMBOLISM
     Dosage: 15 MG
     Route: 048
     Dates: start: 20130622
  6. XARELTO (RIVAROXABAN) TABLET [Suspect]
     Indication: DEEP VEIN THROMBOSIS
  7. VERAPAMIL [Concomitant]
  8. MILK OF MAGNESIA [Concomitant]
     Indication: FAECALOMA
     Route: 065
  9. DULCOLAX [Concomitant]
     Indication: FAECALOMA
     Route: 065

REACTIONS (4)
  - Haemorrhage urinary tract [Recovered/Resolved]
  - Chromaturia [Not Recovered/Not Resolved]
  - Decreased appetite [Not Recovered/Not Resolved]
  - Back pain [Not Recovered/Not Resolved]
